FAERS Safety Report 6300698-7 (Version None)
Quarter: 2009Q3

REPORT INFORMATION
  Report Type: 
  Country: None (occurrence: None)
  Receive Date: 20090807
  Receipt Date: 20071226
  Transmission Date: 20100115
  Serious: Yes (Hospitalization, Other)
  Sender: FDA-Public Use
  Company Number: US-ASTRAZENECA-2006UW25778

PATIENT
  Age: 46 Year
  Sex: Male
  Weight: 156 kg

DRUGS (19)
  1. SEROQUEL [Suspect]
     Indication: DEPRESSION
     Dosage: 100 MG - 400 MG
     Route: 048
     Dates: start: 19981116
  2. SEROQUEL [Suspect]
     Route: 048
     Dates: start: 20000101, end: 20060101
  3. HALDOL [Concomitant]
  4. ZYPREXA [Concomitant]
     Dosage: 5 MG TO 15 MG
     Dates: start: 19970401, end: 20070101
  5. ATIVAN [Concomitant]
  6. BENADRYL [Concomitant]
  7. NAVANE [Concomitant]
  8. STELAZINE [Concomitant]
  9. THORAZINE [Concomitant]
  10. TRILAFON [Concomitant]
  11. ATENOLOL [Concomitant]
     Dosage: 50 MG - 100 MG
     Route: 048
     Dates: start: 19941212
  12. LISINOPRIL [Concomitant]
     Dosage: 10 MG - 20 MG
     Route: 048
     Dates: start: 19941212
  13. RISPERDAL [Concomitant]
     Dosage: 2 MG - 18 MG
     Route: 048
     Dates: start: 19981104
  14. COGENTIN [Concomitant]
     Route: 048
     Dates: start: 19981104
  15. SERZONE [Concomitant]
     Route: 048
     Dates: start: 19981104
  16. DEPAKOTE [Concomitant]
     Route: 048
     Dates: start: 19981107
  17. HYDROCHLOROTHIAZIDE [Concomitant]
     Route: 048
     Dates: start: 20050409
  18. PRAVASTATIN SODIUM [Concomitant]
     Dates: start: 20071029
  19. FLUVASTATIN [Concomitant]
     Dates: start: 20071029

REACTIONS (18)
  - BLOOD CHOLESTEROL INCREASED [None]
  - BLOOD TRIGLYCERIDES INCREASED [None]
  - CELLULITIS [None]
  - DECUBITUS ULCER [None]
  - DIABETES MELLITUS [None]
  - DIABETES MELLITUS INADEQUATE CONTROL [None]
  - DIABETIC ULCER [None]
  - DIABETIC VASCULAR DISORDER [None]
  - DYSLIPIDAEMIA [None]
  - GANGRENE [None]
  - HYPERCHOLESTEROLAEMIA [None]
  - HYPERLIPIDAEMIA [None]
  - LIMB INJURY [None]
  - LOCALISED INFECTION [None]
  - OBESITY [None]
  - OSTEOMYELITIS [None]
  - TOE AMPUTATION [None]
  - TYPE 2 DIABETES MELLITUS [None]
